FAERS Safety Report 6804351-2 (Version None)
Quarter: 2010Q2

REPORT INFORMATION
  Report Type: 
  Country: None (occurrence: None)
  Receive Date: 20100628
  Receipt Date: 20070327
  Transmission Date: 20101027
  Serious: No
  Sender: FDA-Public Use
  Company Number: US-PFIZER INC-2007005068

PATIENT
  Sex: Male
  Weight: 82.55 kg

DRUGS (8)
  1. GENOTROPIN [Suspect]
     Indication: GROWTH HORMONE DEFICIENCY
     Dates: start: 20060101
  2. NEXIUM [Concomitant]
  3. NAPROXEN [Concomitant]
  4. VYTORIN [Concomitant]
  5. OMACOR [Concomitant]
  6. ALL OTHER THERAPEUTIC PRODUCTS [Concomitant]
  7. ICAPS [Concomitant]
  8. CHONDROITIN/GLUCOSAMINE [Concomitant]

REACTIONS (2)
  - OEDEMA PERIPHERAL [None]
  - PAIN IN EXTREMITY [None]
